FAERS Safety Report 7521338-5 (Version None)
Quarter: 2011Q2

REPORT INFORMATION
  Report Type: 
  Country: None (occurrence: None)
  Receive Date: 20110603
  Receipt Date: 20101220
  Transmission Date: 20111010
  Serious: Yes (Death, Hospitalization, Other)
  Sender: FDA-Public Use
  Company Number: JP-BAYER-201012341BYL

PATIENT
  Age: 79 Year
  Sex: Male

DRUGS (18)
  1. CONIEL [Concomitant]
  2. DRUGS USED IN BENIGN PROSTATIC HYPERTROPHY [Concomitant]
     Dosage: 8 MG (DAILY DOSE), , ORAL
     Route: 048
  3. NORVASC [Concomitant]
     Indication: HYPERTENSION
     Dosage: 5 MG (DAILY DOSE), , ORAL
     Route: 048
     Dates: start: 20100330, end: 20100409
  4. NEXAVAR [Suspect]
     Dosage: 400 MG (DAILY DOSE), , ORAL
     Route: 048
     Dates: start: 20100430, end: 20100511
  5. OMEPRAZOLE [Concomitant]
     Dosage: 20 MG (DAILY DOSE), , ORAL
     Route: 048
  6. DOXAZOSIN MESYLATE [Concomitant]
     Dosage: 2 MG (DAILY DOSE), , ORAL
     Route: 048
     Dates: start: 20100420
  7. ZYRTEC [Concomitant]
     Dosage: 10 MG (DAILY DOSE), , ORAL
     Route: 048
  8. SILODOSIN [Concomitant]
     Dosage: 8 MG (DAILY DOSE), , ORAL
     Route: 048
  9. CANDESARTAN CILEXETIL [Concomitant]
     Indication: HYPERTENSION
     Dosage: 4 MG (DAILY DOSE), , ORAL
     Route: 048
     Dates: start: 20100401, end: 20100405
  10. NORVASC [Concomitant]
     Dosage: 10 MG (DAILY DOSE), , ORAL
     Route: 048
     Dates: start: 20100410
  11. NEXAVAR [Suspect]
     Dosage: 400 MG (DAILY DOSE), , ORAL
     Route: 048
     Dates: start: 20100420, end: 20100426
  12. CANDESARTAN CILEXETIL [Concomitant]
     Dosage: 8 MG (DAILY DOSE), , ORAL
     Route: 048
     Dates: start: 20100406, end: 20100408
  13. KERATINAMIN [Concomitant]
     Route: 061
     Dates: start: 20100405
  14. NEXAVAR [Suspect]
     Indication: HEPATIC NEOPLASM MALIGNANT
     Dosage: 800 MG (DAILY DOSE), , ORAL
     Route: 048
     Dates: start: 20100406, end: 20100419
  15. SHOUSAIKOTOU [Concomitant]
     Dosage: 3 DF (DAILY DOSE), , ORAL
     Route: 048
     Dates: end: 20100511
  16. CANDESARTAN CILEXETIL [Concomitant]
     Dosage: 12 MG (DAILY DOSE), , ORAL
     Route: 048
     Dates: start: 20100406
  17. DOXAZOSIN MESYLATE [Concomitant]
     Indication: HYPERTENSION
     Dosage: 1 MG (DAILY DOSE), , ORAL
     Route: 048
     Dates: end: 20100419
  18. CONIEL [Concomitant]
     Indication: HYPERTENSION
     Dosage: 4 MG (DAILY DOSE), , ORAL
     Route: 048
     Dates: end: 20100409

REACTIONS (7)
  - ALANINE AMINOTRANSFERASE INCREASED [None]
  - PYREXIA [None]
  - BLOOD BILIRUBIN INCREASED [None]
  - ACUTE HEPATIC FAILURE [None]
  - HYPERTENSION [None]
  - PALMAR-PLANTAR ERYTHRODYSAESTHESIA SYNDROME [None]
  - ASPARTATE AMINOTRANSFERASE INCREASED [None]
